FAERS Safety Report 5734567-8 (Version None)
Quarter: 2008Q2

REPORT INFORMATION
  Report Type: 
  Country: None (occurrence: None)
  Receive Date: 20080508
  Receipt Date: 20080508
  Transmission Date: 20081010
  Serious: No
  Sender: FDA-Public Use
  Company Number: None

PATIENT
  Age: 64 Year
  Sex: Male
  Weight: 117.9352 kg

DRUGS (2)
  1. CREST PRO-HEALTH MOUTH RINSE PROCTER AND GAMBLE [Suspect]
     Indication: GINGIVAL DISORDER
     Dosage: HALF CAPFUL ONCE DAILY PO
     Route: 048
     Dates: start: 20051027, end: 20060601
  2. CREST PRO-HEALTH MOUTH RINSE PROCTER AND GAMBLE [Suspect]
     Indication: PROPHYLAXIS
     Dosage: HALF CAPFUL ONCE DAILY PO
     Route: 048
     Dates: start: 20051027, end: 20060601

REACTIONS (1)
  - TOOTH DISCOLOURATION [None]
